FAERS Safety Report 12223458 (Version 1)
Quarter: 2016Q1

REPORT INFORMATION
  Report Type: Spontaneous
  Country: US (occurrence: US)
  Receive Date: 20160330
  Receipt Date: 20160330
  Transmission Date: 20160526
  Serious: No
  Sender: FDA-Public Use
  Company Number: ALCN2014US005938

PATIENT
  Age: 69 Year
  Sex: Female

DRUGS (1)
  1. TRAVATAN Z [Suspect]
     Active Substance: TRAVOPROST
     Indication: OCULAR HYPERTENSION
     Dosage: 1 GTT, QD
     Route: 047
     Dates: start: 20141017

REACTIONS (5)
  - Rash pruritic [Recovering/Resolving]
  - Erythema of eyelid [Not Recovered/Not Resolved]
  - Photophobia [Not Recovered/Not Resolved]
  - Blepharitis [Not Recovered/Not Resolved]
  - Eye pain [Not Recovered/Not Resolved]

NARRATIVE: CASE EVENT DATE: 20141017
